FAERS Safety Report 5006288-0 (Version None)
Quarter: 2006Q2

REPORT INFORMATION
  Report Type: 
  Country: None (occurrence: None)
  Receive Date: 20060519
  Receipt Date: 20060509
  Transmission Date: 20061013
  Serious: Yes (Other)
  Sender: FDA-Public Use
  Company Number: PHBS2006ES07052

PATIENT
  Age: 56 Year
  Sex: Female

DRUGS (1)
  1. FEMARA [Suspect]
     Dates: start: 20050601

REACTIONS (4)
  - MENISCUS LESION [None]
  - MUSCULOSKELETAL DISORDER [None]
  - TENDONITIS [None]
  - TRIGGER FINGER [None]
